FAERS Safety Report 17703204 (Version 1)
Quarter: 2020Q2

REPORT INFORMATION
  Report Type: Spontaneous
  Country: US (occurrence: DE)
  Receive Date: 20200424
  Receipt Date: 20200424
  Transmission Date: 20200714
  Serious: Yes (Other)
  Sender: FDA-Public Use
  Company Number: DE-HIKMA PHARMACEUTICALS USA INC.-DE-H14001-20-51146

PATIENT
  Age: 42 Year
  Sex: Male

DRUGS (13)
  1. STREPTOMYCIN [Suspect]
     Active Substance: STREPTOMYCIN SULFATE
     Indication: WHIPPLE^S DISEASE
     Route: 065
  2. HYDROXYCHLOROQUINE [Suspect]
     Active Substance: HYDROXYCHLOROQUINE
     Indication: WHIPPLE^S DISEASE
     Route: 065
     Dates: start: 200701, end: 200702
  3. CEFTRIAXONE SODIUM. [Suspect]
     Active Substance: CEFTRIAXONE SODIUM
     Indication: WHIPPLE^S DISEASE
     Route: 065
     Dates: start: 200612, end: 200702
  4. PREDNISONE. [Suspect]
     Active Substance: PREDNISONE
     Route: 065
  5. PREDNISONE. [Suspect]
     Active Substance: PREDNISONE
     Route: 065
  6. SULFAMETHOXAZOLE AND TRIMETHOPRIM [Suspect]
     Active Substance: SULFAMETHOXAZOLE\TRIMETHOPRIM
     Indication: WHIPPLE^S DISEASE
     Route: 065
  7. SULFAMETHOXAZOLE AND TRIMETHOPRIM [Suspect]
     Active Substance: SULFAMETHOXAZOLE\TRIMETHOPRIM
     Route: 065
  8. CEFTRIAXONE. [Suspect]
     Active Substance: CEFTRIAXONE
     Indication: WHIPPLE^S DISEASE
     Route: 065
  9. PREDNISONE. [Suspect]
     Active Substance: PREDNISONE
     Indication: WHIPPLE^S DISEASE
     Dosage: ()
     Route: 065
  10. COTRIMOXAZOLE [Suspect]
     Active Substance: SULFAMETHOXAZOLE\TRIMETHOPRIM
     Indication: WHIPPLE^S DISEASE
     Route: 065
     Dates: start: 200701, end: 200702
  11. DOXYCYCLINE. [Suspect]
     Active Substance: DOXYCYCLINE
     Indication: WHIPPLE^S DISEASE
     Route: 065
     Dates: start: 200701, end: 200702
  12. AZATHIOPRINE. [Suspect]
     Active Substance: AZATHIOPRINE
     Indication: HERPES DERMATITIS
     Route: 065
  13. ACYCLOVIR. [Suspect]
     Active Substance: ACYCLOVIR
     Indication: HERPES DERMATITIS
     Route: 065

REACTIONS (12)
  - Papilloma viral infection [Recovering/Resolving]
  - Periorbital swelling [Recovering/Resolving]
  - Panniculitis [Unknown]
  - Herpes simplex [Recovered/Resolved]
  - Nodule [Recovering/Resolving]
  - Erythema nodosum [Unknown]
  - Herpes dermatitis [Recovered/Resolved]
  - Periorbital oedema [Recovering/Resolving]
  - Immune reconstitution inflammatory syndrome [Unknown]
  - Mass [Recovering/Resolving]
  - Lymphoedema [Unknown]
  - Dermatitis [Unknown]

NARRATIVE: CASE EVENT DATE: 200701
